FAERS Safety Report 6204362-4 (Version None)
Quarter: 2009Q2

REPORT INFORMATION
  Report Type: 
  Country: None (occurrence: None)
  Receive Date: 20090527
  Receipt Date: 20090515
  Transmission Date: 20091009
  Serious: Yes (Hospitalization)
  Sender: FDA-Public Use
  Company Number: ES-ELI_LILLY_AND_COMPANY-ES200905004199

PATIENT
  Age: 63 Year
  Sex: Female
  Weight: 110 kg

DRUGS (1)
  1. FORTEO [Suspect]
     Indication: OSTEOPOROSIS
     Dosage: 20 UG, DAILY (1/D)
     Route: 058
     Dates: start: 20081201, end: 20090301

REACTIONS (5)
  - FEMUR FRACTURE [None]
  - GAIT DISTURBANCE [None]
  - HIP FRACTURE [None]
  - PAIN [None]
  - RHEUMATOID ARTHRITIS [None]
